FAERS Safety Report 16775882 (Version 1)
Quarter: 2019Q3

REPORT INFORMATION
  Report Type: Spontaneous
  Country: US (occurrence: US)
  Receive Date: 20190716
  Receipt Date: 20190716
  Transmission Date: 20191005
  Serious: No
  Sender: FDA-Public Use
  Company Number: None

PATIENT
  Sex: Female

DRUGS (2)
  1. FOLLISTIM AQ [Suspect]
     Active Substance: FOLLITROPIN
     Indication: INFERTILITY
     Dosage: ?          OTHER DOSE:75-450 UNITS;?
     Route: 058
     Dates: start: 20190611
  2. GANNIRELIX SYR 250MCG SYR [Suspect]
     Active Substance: GANIRELIX
     Indication: INFERTILITY
     Dosage: ?          OTHER DOSE:0.5ML;?
     Route: 058
     Dates: start: 20190611

REACTIONS (2)
  - Breast pain [None]
  - Headache [None]
